FAERS Safety Report 5201720-1 (Version None)
Quarter: 2007Q1

REPORT INFORMATION
  Report Type: 
  Country: None (occurrence: None)
  Receive Date: 20070104
  Receipt Date: 20061221
  Transmission Date: 20070707
  Serious: Yes (Death, Hospitalization, Other)
  Sender: FDA-Public Use
  Company Number: 2006JP004945

PATIENT
  Age: 19 Year
  Sex: Male

DRUGS (3)
  1. PROGRAF [Suspect]
     Indication: BONE MARROW TRANSPLANT
  2. METHOTREXATE (METHOTREXATE SODIUM) [Concomitant]
  3. CYCLOPHOSPHAMIDE [Concomitant]

REACTIONS (10)
  - BLOOD PRESSURE DECREASED [None]
  - CYSTITIS HAEMORRHAGIC [None]
  - CYTOMEGALOVIRUS ENTEROCOLITIS [None]
  - DISEASE PROGRESSION [None]
  - GASTROINTESTINAL HAEMORRHAGE [None]
  - GRAFT VERSUS HOST DISEASE [None]
  - IMMUNOSUPPRESSION [None]
  - INFECTION [None]
  - RENAL FAILURE CHRONIC [None]
  - THROMBOTIC MICROANGIOPATHY [None]
